FAERS Safety Report 11272432 (Version 1)
Quarter: 2015Q3

REPORT INFORMATION
  Report Type: Spontaneous
  Country: GB (occurrence: GB)
  Receive Date: 20150715
  Receipt Date: 20150715
  Transmission Date: 20151125
  Serious: Yes (Other)
  Sender: FDA-Public Use
  Company Number: GB-JNJFOC-20150705749

PATIENT
  Age: 8 Year
  Sex: Female

DRUGS (2)
  1. OXYBUTYNIN [Suspect]
     Active Substance: OXYBUTYNIN
     Indication: ENURESIS
     Route: 065
     Dates: start: 20150421, end: 20150505
  2. DESMOMELT [Concomitant]
     Indication: ENURESIS
     Route: 065
     Dates: start: 20140414

REACTIONS (6)
  - Abdominal pain upper [Recovered/Resolved]
  - Polydipsia [Recovered/Resolved]
  - Vision blurred [Recovered/Resolved]
  - Personality change [Recovered/Resolved]
  - Headache [Recovered/Resolved]
  - Dry mouth [Recovered/Resolved]

NARRATIVE: CASE EVENT DATE: 20150428
